APPROVED DRUG PRODUCT: ZINC SULFATE
Active Ingredient: ZINC SULFATE
Strength: EQ 30MG BASE/10ML (EQ 3MG BASE/ML)
Dosage Form/Route: SOLUTION;INTRAVENOUS
Application: N209377 | Product #001 | TE Code: AP
Applicant: AMERICAN REGENT INC
Approved: Jul 18, 2019 | RLD: Yes | RS: Yes | Type: RX